FAERS Safety Report 11713458 (Version 1)
Quarter: 2015Q4

REPORT INFORMATION
  Report Type: Spontaneous
  Country: US (occurrence: None)
  Receive Date: 20151106
  Receipt Date: 20151106
  Transmission Date: 20160304
  Serious: Yes (Other)
  Sender: FDA-Public Use
  Company Number: None

PATIENT
  Age: 9 Year
  Sex: Male
  Weight: 77 kg

DRUGS (1)
  1. GAMUNEX [Suspect]
     Active Substance: HUMAN IMMUNOGLOBULIN G
     Indication: AUTOIMMUNE DISORDER
     Dosage: VARIABLE
     Route: 042
     Dates: start: 20151020, end: 20151103

REACTIONS (3)
  - Cough [None]
  - Respiratory distress [None]
  - Rash [None]

NARRATIVE: CASE EVENT DATE: 20151020
